FAERS Safety Report 10204636 (Version 6)
Quarter: 2015Q1

REPORT INFORMATION
  Report Type: Spontaneous
  Country: IT (occurrence: IT)
  Receive Date: 20140529
  Receipt Date: 20150305
  Transmission Date: 20150720
  Serious: Yes (Other)
  Sender: FDA-Public Use
  Company Number: IT-TEVA-482676ISR

PATIENT
  Age: 58 Year
  Sex: Female

DRUGS (3)
  1. RATIOGRASTIM 30 MIU [Suspect]
     Active Substance: FILGRASTIM
     Indication: APLASIA
     Dosage: 2 DOSAGE FORMS DAILY;
     Route: 042
     Dates: start: 20140416, end: 20140416
  2. TEVAGRASTIM 30 MIU [Suspect]
     Active Substance: FILGRASTIM
     Dosage: 2 DOSAGE FORMS DAILY;
     Route: 042
     Dates: start: 20140417, end: 20140417
  3. TEVAGRASTIM 30 MIU [Suspect]
     Active Substance: FILGRASTIM
     Indication: APLASIA
     Dosage: 2 DOSAGE FORMS DAILY;
     Route: 042
     Dates: start: 20140417, end: 20140417

REACTIONS (4)
  - Bradycardia [Recovered/Resolved]
  - Dyspnoea [Recovered/Resolved]
  - Hypotension [Recovered/Resolved]
  - Laryngeal oedema [Recovered/Resolved]

NARRATIVE: CASE EVENT DATE: 20140417
